FAERS Safety Report 4582617-7 (Version None)
Quarter: 2005Q1

REPORT INFORMATION
  Report Type: 
  Country: None (occurrence: None)
  Receive Date: 20050211
  Receipt Date: 20050211
  Transmission Date: 20050727
  Serious: Yes (Hospitalization)
  Sender: FDA-Public Use
  Company Number: None

PATIENT
  Age: 72 Year
  Sex: Male
  Weight: 86.1834 kg

DRUGS (11)
  1. GATIFLOXACIN [Suspect]
     Indication: CHRONIC OBSTRUCTIVE AIRWAYS DISEASE EXACERBATED
     Dates: start: 20041224, end: 20050103
  2. CITALOPRAM HYDROBROMIDE [Concomitant]
  3. LANOXIN [Concomitant]
  4. .. [Concomitant]
  5. FORMOTEROL FUMARATE [Concomitant]
  6. GEMFIBROZIL [Concomitant]
  7. LISINOPRIL [Concomitant]
  8. TRIAMCINOLONE [Concomitant]
  9. VITAMIN E [Concomitant]
  10. COUMADIN [Concomitant]
  11. PREDNISONE [Concomitant]

REACTIONS (6)
  - CARDIAC FAILURE CONGESTIVE [None]
  - DIARRHOEA [None]
  - DYSPNOEA [None]
  - HEPATOTOXICITY [None]
  - LIVER FUNCTION TEST ABNORMAL [None]
  - RESPIRATORY ALKALOSIS [None]
